FAERS Safety Report 9862733 (Version 3)
Quarter: 2014Q2

REPORT INFORMATION
  Report Type: Spontaneous
  Country: CA (occurrence: None)
  Receive Date: 20140130
  Receipt Date: 20140529
  Transmission Date: 20141212
  Serious: Yes (Hospitalization, Other)
  Sender: FDA-Public Use
  Company Number: CA-013912

PATIENT
  Age: 65 Year
  Sex: Male
  Weight: 221 kg

DRUGS (15)
  1. FIRMAGON /01764801/ (FIRMAGON) (240 MG, 80 MG) (NOT SPECIFIED) [Suspect]
     Indication: PROSTATE CANCER
     Dosage: (240 MG 1X SUBCUTANEOUS), (80 MG 1X/MONTH SUBCUTANEOUS)
     Route: 058
     Dates: start: 20130501, end: 20130501
  2. DIAMICRON [Concomitant]
  3. ZYLOPRIM [Concomitant]
  4. SLOW K [Concomitant]
  5. SPIRONOLACTONE [Concomitant]
  6. METOPROLOL [Concomitant]
  7. METFORMIN [Concomitant]
  8. NOVO-THEOPHYL [Concomitant]
  9. RAMIPRIL [Concomitant]
  10. VENTOLIN /00139501/ [Concomitant]
  11. FUROSEMIDE [Concomitant]
  12. ARTOVENT [Concomitant]
  13. METHACIN [Concomitant]
  14. NOVOLIN [Concomitant]
  15. FLOVENT [Concomitant]

REACTIONS (6)
  - Dyspnoea [None]
  - Haematochezia [None]
  - Fall [None]
  - Muscular weakness [None]
  - Wrist fracture [None]
  - Gastrointestinal haemorrhage [None]
